FAERS Safety Report 9117868 (Version 2)
Quarter: 2013Q3

REPORT INFORMATION
  Report Type: Spontaneous
  Country: US (occurrence: US)
  Receive Date: 20130225
  Receipt Date: 20130729
  Transmission Date: 20140515
  Serious: Yes (Hospitalization, Other)
  Sender: FDA-Public Use
  Company Number: US-AMGEN-USASP2013011809

PATIENT
  Age: 61 Year
  Sex: Female

DRUGS (5)
  1. ENBREL [Suspect]
     Indication: RHEUMATOID ARTHRITIS
     Dosage: 25 MG, 2 TIMES/WK
     Route: 065
     Dates: start: 19990201
  2. ENBREL [Suspect]
     Route: 065
  3. CELEBREX [Concomitant]
     Dosage: UNK
  4. PREDNISONE [Concomitant]
     Dosage: UNK
  5. METHOTREXATE [Concomitant]
     Dosage: UNK

REACTIONS (19)
  - Hip arthroplasty [Recovered/Resolved]
  - Acetabulum fracture [Recovered/Resolved]
  - Colostomy [Recovered/Resolved]
  - Knee arthroplasty [Recovered/Resolved]
  - Colon operation [Recovered/Resolved]
  - Cystitis [Not Recovered/Not Resolved]
  - Convulsion [Recovered/Resolved]
  - Sepsis [Recovered/Resolved]
  - Localised infection [Recovered/Resolved]
  - Confusional state [Not Recovered/Not Resolved]
  - Limb deformity [Not Recovered/Not Resolved]
  - Emotional distress [Not Recovered/Not Resolved]
  - Hallucination [Recovered/Resolved]
  - Clostridium difficile infection [Recovered/Resolved]
  - Therapeutic response decreased [Not Recovered/Not Resolved]
  - Fatigue [Not Recovered/Not Resolved]
  - Pain [Not Recovered/Not Resolved]
  - Rash erythematous [Not Recovered/Not Resolved]
  - Injection site pain [Not Recovered/Not Resolved]
